FAERS Safety Report 17686222 (Version 2)
Quarter: 2020Q2

REPORT INFORMATION
  Report Type: Report from Study
  Country: KR (occurrence: KR)
  Receive Date: 20200420
  Receipt Date: 20200422
  Transmission Date: 20200714
  Serious: Yes (Hospitalization)
  Sender: FDA-Public Use
  Company Number: KR-DSJP-DSJ-2020-111507AA

PATIENT

DRUGS (17)
  1. LEVODROPROPIZINE [Concomitant]
     Active Substance: LEVODROPROPIZINE
     Indication: COUGH
     Dosage: 20 MG, TID
     Route: 048
     Dates: start: 20191113, end: 20191208
  2. DILATREND [Concomitant]
     Active Substance: CARVEDILOL
     Indication: CARDIAC FAILURE CHRONIC
     Dosage: 3.125 MG, QD
     Route: 048
     Dates: start: 20180523
  3. EDOXABAN [Suspect]
     Active Substance: EDOXABAN TOSYLATE
     Indication: PRODUCT USED FOR UNKNOWN INDICATION
     Dosage: 30 MG, QD
     Route: 048
     Dates: start: 20181207, end: 20191111
  4. GLIATILIN [Concomitant]
     Active Substance: CHOLINE ALFOSCERATE
     Indication: CEREBROVASCULAR ACCIDENT
     Dosage: 200 MG, BID
     Route: 048
     Dates: start: 20180420
  5. FAMOTIDINE. [Concomitant]
     Active Substance: FAMOTIDINE
     Indication: PROPHYLAXIS
     Dosage: 20 MG, QD
     Route: 048
     Dates: start: 20191111, end: 20191119
  6. GLIATILIN [Concomitant]
     Active Substance: CHOLINE ALFOSCERATE
     Dosage: 200 MG, BID
     Route: 048
     Dates: start: 20181207, end: 20191110
  7. ATORVASTATIN [Concomitant]
     Active Substance: ATORVASTATIN
     Indication: CEREBROVASCULAR ACCIDENT
     Dosage: 110 MG, QD
     Route: 048
     Dates: start: 20191111
  8. SINIL-M [Concomitant]
     Indication: PROPHYLAXIS
     Dosage: 250 MG, BID
     Route: 048
     Dates: start: 20191112, end: 20191128
  9. DIOVAN [Concomitant]
     Active Substance: VALSARTAN
     Indication: CARDIAC FAILURE CHRONIC
     Dosage: 40 MG, QD
     Route: 048
     Dates: start: 20170906
  10. DABIGATRAN                         /01633202/ [Concomitant]
     Active Substance: DABIGATRAN
     Indication: ATRIAL FIBRILLATION
     Dosage: 55 MG, BID
     Route: 048
     Dates: start: 20191111
  11. VALSARTAN. [Concomitant]
     Active Substance: VALSARTAN
     Indication: CARDIAC FAILURE CHRONIC
     Dosage: 40 MG, QD
     Route: 048
     Dates: start: 20180523
  12. CARVEDILOL. [Concomitant]
     Active Substance: CARVEDILOL
     Indication: CARDIAC FAILURE CHRONIC
     Dosage: 3.125 MG, QD
     Route: 048
     Dates: start: 20180523
  13. LAMINA-G [Concomitant]
     Indication: PROPHYLAXIS
     Dosage: 20 ML, TID
     Route: 048
     Dates: start: 20191112, end: 20191228
  14. HINECOL [Concomitant]
     Active Substance: BETHANECHOL CHLORIDE
     Indication: PROPHYLAXIS
     Dosage: 8.3 MG, TID
     Route: 048
     Dates: start: 20191111, end: 20191119
  15. CITICOLINE SODIUM [Concomitant]
     Active Substance: CITICOLINE SODIUM
     Indication: CEREBROVASCULAR ACCIDENT
     Dosage: 250 MG, BID
     Route: 048
     Dates: start: 20191111, end: 20191120
  16. RABEPRAZOLE                        /01417202/ [Concomitant]
     Active Substance: RABEPRAZOLE SODIUM
     Indication: PROPHYLAXIS
     Dosage: 10 MG, QD
     Route: 048
     Dates: start: 20191112, end: 20191228
  17. CITICOLINE [Concomitant]
     Active Substance: CITICOLINE
     Indication: CEREBROVASCULAR ACCIDENT
     Dosage: 250 MG, BID
     Route: 048
     Dates: start: 20191111, end: 20191120

REACTIONS (4)
  - Pneumonia [Recovered/Resolved]
  - Dysuria [Recovered/Resolved]
  - Haematuria [Unknown]
  - Cerebral infarction [Recovered/Resolved]

NARRATIVE: CASE EVENT DATE: 20191110
